FAERS Safety Report 6645446-6 (Version None)
Quarter: 2010Q1

REPORT INFORMATION
  Report Type: 
  Country: None (occurrence: None)
  Receive Date: 20100322
  Receipt Date: 20100311
  Transmission Date: 20100710
  Serious: Yes (Hospitalization)
  Sender: FDA-Public Use
  Company Number: SE-ASTRAZENECA-2010SE10559

PATIENT
  Age: 76 Year
  Sex: Female

DRUGS (7)
  1. SELOKEN ZOC [Suspect]
     Route: 048
     Dates: end: 20100121
  2. DIGOXIN [Suspect]
     Route: 048
     Dates: end: 20100121
  3. RAMIPRIL [Suspect]
     Route: 048
     Dates: end: 20100121
  4. COMBIGAN [Concomitant]
  5. WARAN [Concomitant]
     Indication: CARDIAC FAILURE
  6. FURIX [Concomitant]
  7. AZOPT [Concomitant]
     Dosage: 10 MG/ML

REACTIONS (2)
  - BLOOD CREATININE INCREASED [None]
  - BRADYCARDIA [None]
